FAERS Safety Report 5299466-7 (Version None)
Quarter: 2007Q1

REPORT INFORMATION
  Report Type: 
  Country: None (occurrence: None)
  Receive Date: 20070201
  Receipt Date: 20061106
  Transmission Date: 20070707
  Serious: No
  Sender: FDA-Public Use
  Company Number: 2006PV024668

PATIENT
  Age: 67 Year
  Sex: Female
  Weight: 101.6057 kg

DRUGS (4)
  1. BYETTA [Suspect]
     Indication: DIABETES MELLITUS NON-INSULIN-DEPENDENT
     Dosage: 5 MCG; QD; SC
     Route: 058
     Dates: start: 20061105
  2. PRANDIN [Concomitant]
  3. AVAPRO [Concomitant]
  4. LIPITOR [Concomitant]

REACTIONS (4)
  - DECREASED APPETITE [None]
  - ENERGY INCREASED [None]
  - FEELING JITTERY [None]
  - HEART RATE INCREASED [None]
